FAERS Safety Report 6731341-0 (Version None)
Quarter: 2010Q2

REPORT INFORMATION
  Report Type: 
  Country: None (occurrence: None)
  Receive Date: 20100517
  Receipt Date: 20100517
  Transmission Date: 20101027
  Serious: Yes (Hospitalization)
  Sender: FDA-Public Use
  Company Number: None

PATIENT
  Age: 61 Year
  Sex: Female
  Weight: 83.0083 kg

DRUGS (1)
  1. CLINDAMYCIN HCL [Suspect]
     Indication: BRONCHITIS
     Dosage: 300 MG TID PO
     Route: 048
     Dates: start: 20100405, end: 20100415

REACTIONS (7)
  - DRUG HYPERSENSITIVITY [None]
  - DYSGEUSIA [None]
  - GASTRIC DISORDER [None]
  - OESOPHAGEAL DISORDER [None]
  - OESOPHAGEAL PAIN [None]
  - PARAESTHESIA [None]
  - PAROSMIA [None]
